FAERS Safety Report 6611463-5 (Version None)
Quarter: 2010Q1

REPORT INFORMATION
  Report Type: 
  Country: None (occurrence: None)
  Receive Date: 20100218
  Receipt Date: 20091019
  Transmission Date: 20100710
  Serious: No
  Sender: FDA-Public Use
  Company Number: WAES 0910USA02432

PATIENT
  Age: 51 Year
  Sex: Male
  Weight: 75.2971 kg

DRUGS (15)
  1. ISENTRESS [Suspect]
     Indication: HIV INFECTION
     Dosage: 400 MG/BID/PO
     Route: 048
     Dates: start: 20090409, end: 20090905
  2. COUMADIN [Concomitant]
  3. EPIVIR [Concomitant]
  4. KALETRA [Concomitant]
  5. LAMICTAL CD [Concomitant]
  6. LEXAPRO [Concomitant]
  7. LEXIVA [Concomitant]
  8. MYFORTIC [Concomitant]
  9. NEXIUM [Concomitant]
  10. NORVIR [Concomitant]
  11. PROGRAF [Concomitant]
  12. VALCYTE [Concomitant]
  13. DAPSONE [Concomitant]
  14. METOPROLOL [Concomitant]
  15. NIFEDIPINE [Concomitant]

REACTIONS (1)
  - MYOPATHY [None]
